FAERS Safety Report 15636425 (Version 1)
Quarter: 2018Q4

REPORT INFORMATION
  Report Type: Spontaneous
  Country: IN (occurrence: IN)
  Receive Date: 20181120
  Receipt Date: 20181120
  Transmission Date: 20190205
  Serious: Yes (Other)
  Sender: FDA-Public Use
  Company Number: IN-ACCORD-073497

PATIENT
  Age: 47 Year
  Sex: Female

DRUGS (3)
  1. NICOTINAMIDE/PYRIDOXINE HYDROCHLORIDE/RIBOFLAVIN/THIAMINE HYDROCHLORIDE [Concomitant]
  2. DOCETAXEL. [Suspect]
     Active Substance: DOCETAXEL
     Indication: INVASIVE LOBULAR BREAST CARCINOMA
  3. NICOTINAMIDE [Concomitant]
     Active Substance: NIACINAMIDE
     Dosage: 300 MG PER DAY IN THREE DIVIDED DOSES

REACTIONS (3)
  - Nicotinic acid deficiency [Recovered/Resolved]
  - Alopecia totalis [Unknown]
  - Nail discolouration [Unknown]
